FAERS Safety Report 8546077-3 (Version None)
Quarter: 2012Q3

REPORT INFORMATION
  Report Type: 
  Country: None (occurrence: None)
  Receive Date: 20120727
  Receipt Date: 20111207
  Transmission Date: 20120928
  Serious: No
  Sender: FDA-Public Use
  Company Number: US-ASTRAZENECA-2011SE74200

PATIENT
  Age: 62 Year
  Sex: Male
  Weight: 94.3 kg

DRUGS (3)
  1. SEROQUEL XR [Suspect]
     Indication: DEPRESSION
     Route: 048
  2. CLONAZEPAM [Concomitant]
  3. SEROQUEL XR [Suspect]
     Indication: SLEEP DISORDER
     Route: 048

REACTIONS (3)
  - DRUG DOSE OMISSION [None]
  - OFF LABEL USE [None]
  - INSOMNIA [None]
